FAERS Safety Report 13289822 (Version 1)
Quarter: 2017Q1

REPORT INFORMATION
  Report Type: Spontaneous
  Country: US (occurrence: US)
  Receive Date: 20170302
  Receipt Date: 20170302
  Transmission Date: 20170428
  Serious: No
  Sender: FDA-Public Use
  Company Number: US-THE MEDICINES COMPANY-US-MDCO-16-00542

PATIENT
  Age: 53 Year
  Sex: Female
  Weight: 73.02 kg

DRUGS (2)
  1. ORBACTIV [Suspect]
     Active Substance: ORITAVANCIN
     Indication: STAPHYLOCOCCAL INFECTION
     Route: 041
     Dates: start: 20161214, end: 20161214
  2. CUBICIN [Concomitant]
     Active Substance: DAPTOMYCIN
     Indication: STAPHYLOCOCCAL INFECTION
     Route: 042
     Dates: start: 20161201, end: 20161214

REACTIONS (7)
  - Flushing [Unknown]
  - Erythema [Unknown]
  - Discomfort [Unknown]
  - Skin lesion [Unknown]
  - Urticaria [Unknown]
  - Rash [Unknown]
  - Pruritus [Recovered/Resolved]

NARRATIVE: CASE EVENT DATE: 20161214
